FAERS Safety Report 9034416 (Version 1)
Quarter: 2012Q4

REPORT INFORMATION
  Report Type: 
  Country: US (occurrence: None)
  Receive Date: 20121206
  Receipt Date: 20121206
  Transmission Date: 20130627
  Serious: No
  Sender: FDA-Public Use
  Company Number: AEUSA201200279

PATIENT
  Age: 27 Year
  Sex: Male

DRUGS (1)
  1. HYPERHEP B [Suspect]
     Indication: HEPATITIS B IMMUNIZATION
     Route: 030
     Dates: start: 20120430, end: 20120430

REACTIONS (1)
  - Wrong drug administered [None]
